FAERS Safety Report 7395659-3 (Version None)
Quarter: 2011Q2

REPORT INFORMATION
  Report Type: 
  Country: None (occurrence: None)
  Receive Date: 20110405
  Receipt Date: 20110329
  Transmission Date: 20111010
  Serious: Yes (Hospitalization)
  Sender: FDA-Public Use
  Company Number: FR-CEPHALON-2011001462

PATIENT
  Sex: Male
  Weight: 95 kg

DRUGS (11)
  1. BENDAMUSTINE HCL [Suspect]
     Route: 042
     Dates: start: 20110311, end: 20110311
  2. NICERGOLINE [Concomitant]
  3. GARDENAL [Concomitant]
  4. RITUXIMAB [Suspect]
     Dates: start: 20110316
  5. ZELITREX [Concomitant]
     Dates: start: 20110311
  6. RITUXIMAB [Suspect]
     Dates: start: 20110311, end: 20110311
  7. PARIET [Concomitant]
  8. CORTANCYL [Concomitant]
     Dates: start: 20110303, end: 20110318
  9. PLAVIX [Concomitant]
     Dates: end: 20110311
  10. BACTRIM [Concomitant]
     Dates: start: 20110311
  11. BENDAMUSTINE HCL [Suspect]
     Route: 042
     Dates: start: 20110313

REACTIONS (1)
  - TUMOUR LYSIS SYNDROME [None]
